FAERS Safety Report 20379357 (Version 1)
Quarter: 2022Q1

REPORT INFORMATION
  Report Type: Spontaneous
  Country: US (occurrence: None)
  Receive Date: 20220126
  Receipt Date: 20220126
  Transmission Date: 20220424
  Serious: Yes (Disabling)
  Sender: FDA-Public Use
  Company Number: None

PATIENT
  Sex: Male
  Weight: 81 kg

DRUGS (4)
  1. HALOPERIDOL DECANOATE [Suspect]
     Active Substance: HALOPERIDOL DECANOATE
     Indication: Psychotic disorder
     Dosage: OTHER QUANTITY : 1 INJECTION(S);?OTHER FREQUENCY : EVERY FOUR WEEKS;?OTHER ROUTE : IM - IN THE UPPER
     Route: 030
  2. SENNA [Concomitant]
     Active Substance: SENNA LEAF\SENNOSIDES\SENNOSIDES A AND B
  3. DOCUSATE SODIUM [Concomitant]
     Active Substance: DOCUSATE SODIUM
  4. BENADRYL [Concomitant]
     Active Substance: DIPHENHYDRAMINE HYDROCHLORIDE

REACTIONS (14)
  - Disturbance in attention [None]
  - Learning disorder [None]
  - Emotional disorder [None]
  - Speech disorder [None]
  - Emotional poverty [None]
  - Insomnia [None]
  - Incontinence [None]
  - Tremor [None]
  - Sexual dysfunction [None]
  - Asthenia [None]
  - Asthenia [None]
  - Hypoaesthesia [None]
  - Thinking abnormal [None]
  - Feeling abnormal [None]
